FAERS Safety Report 16381041 (Version 2)
Quarter: 2019Q2

REPORT INFORMATION
  Report Type: Spontaneous
  Country: JP (occurrence: JP)
  Receive Date: 20190602
  Receipt Date: 20190617
  Transmission Date: 20190711
  Serious: Yes (Hospitalization, Other)
  Sender: FDA-Public Use
  Company Number: PHJP2019JP005835

PATIENT
  Age: 78 Year
  Sex: Male

DRUGS (2)
  1. PREDONINE [Concomitant]
     Active Substance: PREDNISOLONE
     Indication: PRODUCT USED FOR UNKNOWN INDICATION
     Dosage: 1 MG, BID
     Route: 065
  2. NEORAL [Suspect]
     Active Substance: CYCLOSPORINE
     Indication: PRODUCT USED FOR UNKNOWN INDICATION
     Dosage: 75 MG, QD
     Route: 048
     Dates: start: 2017

REACTIONS (7)
  - Pyrexia [Unknown]
  - Urinary tract infection [Unknown]
  - Disuse syndrome [Unknown]
  - Pneumonia [Unknown]
  - Small cell carcinoma [Unknown]
  - Steroid diabetes [Unknown]
  - Paraneoplastic syndrome [Unknown]
